FAERS Safety Report 5636635-8 (Version None)
Quarter: 2008Q1

REPORT INFORMATION
  Report Type: 
  Country: None (occurrence: None)
  Receive Date: 20080225
  Receipt Date: 20080219
  Transmission Date: 20080703
  Serious: Yes (Hospitalization)
  Sender: FDA-Public Use
  Company Number: JP-ASTRAZENECA-2008AP00613

PATIENT
  Age: 74 Year
  Sex: Male
  Weight: 59 kg

DRUGS (13)
  1. IRESSA [Suspect]
     Indication: LUNG NEOPLASM MALIGNANT
     Route: 048
     Dates: start: 20070907, end: 20080118
  2. CLARITHROMYCIN [Concomitant]
     Indication: SINUSITIS
     Route: 048
     Dates: start: 20070603
  3. SEDIEL [Concomitant]
     Indication: PSYCHOSOMATIC DISEASE
     Route: 048
     Dates: start: 20070606
  4. MUCODYNE [Concomitant]
     Indication: SINUSITIS
     Route: 048
     Dates: start: 20070603
  5. OMEPRAL [Concomitant]
     Indication: GASTRIC ULCER
     Route: 048
     Dates: start: 20070618
  6. MAGMITT [Concomitant]
     Indication: CONSTIPATION
     Route: 048
     Dates: start: 20070620
  7. TRICHLORMETHIAZIDE [Concomitant]
     Indication: HYPERTENSION
     Route: 048
     Dates: start: 20070824
  8. ENALAPRIL MALEATE [Concomitant]
     Indication: HYPERTENSION
     Route: 048
     Dates: start: 20070824
  9. TENORMIN [Concomitant]
     Indication: HYPERTENSION
     Route: 048
     Dates: start: 20071116
  10. BUP-4 [Concomitant]
     Indication: POLLAKIURIA
     Route: 048
  11. GOODMIN [Concomitant]
     Indication: INSOMNIA
     Route: 048
  12. SYMMETREL [Concomitant]
     Indication: CEREBRAL INFARCTION
     Route: 048
  13. NORVASC [Concomitant]
     Indication: HYPERTENSION
     Route: 048

REACTIONS (1)
  - INTESTINAL OBSTRUCTION [None]
